FAERS Safety Report 20663382 (Version 6)
Quarter: 2022Q2

REPORT INFORMATION
  Report Type: Report from Study
  Country: CN (occurrence: CN)
  Receive Date: 20220401
  Receipt Date: 20220509
  Transmission Date: 20220720
  Serious: Yes (Hospitalization)
  Sender: FDA-Public Use
  Company Number: CN-GLAXOSMITHKLINE-CN2022GSK034404

PATIENT
  Age: 51 Year
  Sex: Female

DRUGS (2)
  1. BELANTAMAB MAFODOTIN [Suspect]
     Active Substance: BELANTAMAB MAFODOTIN
     Indication: Plasma cell myeloma
     Dosage: 2.5 MG/KG, ON DAY 1 OF EVERY 21-DAY CYCLE
     Route: 042
     Dates: start: 20220121, end: 20220210
  2. SODIUM HYALURONATE EYE DROPS [Concomitant]
     Indication: Prophylaxis
     Dosage: 5 GTT, TID
     Route: 047
     Dates: start: 20220121, end: 20220227

REACTIONS (1)
  - Thrombocytopenia [Not Recovered/Not Resolved]

NARRATIVE: CASE EVENT DATE: 20220210
